FAERS Safety Report 12750602 (Version 1)
Quarter: 2016Q3

REPORT INFORMATION
  Report Type: Spontaneous
  Country: US (occurrence: US)
  Receive Date: 20160916
  Receipt Date: 20160916
  Transmission Date: 20161109
  Serious: No
  Sender: FDA-Public Use
  Company Number: US-JNJFOC-20160906167

PATIENT
  Sex: Female
  Weight: 65.77 kg

DRUGS (2)
  1. AXERT [Suspect]
     Active Substance: ALMOTRIPTAN MALATE
     Indication: MIGRAINE
     Route: 048
     Dates: start: 2003
  2. BROMOCRIPTINE [Concomitant]
     Active Substance: BROMOCRIPTINE
     Indication: PITUITARY TUMOUR BENIGN
     Dosage: 0.0714  (0.5 DOSAGE FORMS)
     Route: 048
     Dates: start: 1996

REACTIONS (2)
  - Drug dose omission [Unknown]
  - Product distribution issue [Unknown]
